FAERS Safety Report 23987922 (Version 2)
Quarter: 2025Q3

REPORT INFORMATION
  Report Type: Spontaneous
  Country: US (occurrence: US)
  Receive Date: 20240619
  Receipt Date: 20250707
  Transmission Date: 20251020
  Serious: No
  Sender: ACCORD
  Company Number: US-Accord-425975

PATIENT
  Sex: Male

DRUGS (2)
  1. LEUPROLIDE [Suspect]
     Active Substance: LEUPROLIDE
     Indication: Prostate cancer
  2. LEUPROLIDE [Suspect]
     Active Substance: LEUPROLIDE
     Indication: Prostate cancer

REACTIONS (4)
  - Trigger finger [Unknown]
  - Tremor [Unknown]
  - Muscle twitching [Unknown]
  - Hypoaesthesia [Unknown]
